FAERS Safety Report 10405819 (Version 1)
Quarter: 2014Q3

REPORT INFORMATION
  Report Type: Spontaneous
  Country: US (occurrence: None)
  Receive Date: 20140822
  Receipt Date: 20140822
  Transmission Date: 20150326
  Serious: Yes (Hospitalization)
  Sender: FDA-Public Use
  Company Number: None

PATIENT
  Age: 30 Year
  Sex: Female
  Weight: 49.9 kg

DRUGS (1)
  1. BENLYSTA [Suspect]
     Active Substance: BELIMUMAB
     Indication: SYSTEMIC LUPUS ERYTHEMATOSUS
     Dosage: 10 MG/KG IV Q 28 DAYS, 2012-2014
     Route: 042
     Dates: start: 2012, end: 2014

REACTIONS (5)
  - Cough [None]
  - Blood pressure increased [None]
  - Pruritus [None]
  - Nausea [None]
  - Tachycardia [None]

NARRATIVE: CASE EVENT DATE: 20140819
